FAERS Safety Report 5916496-X (Version None)
Quarter: 2008Q4

REPORT INFORMATION
  Report Type: 
  Country: None (occurrence: None)
  Receive Date: 20081013
  Receipt Date: 20081007
  Transmission Date: 20090506
  Serious: Yes (Death)
  Sender: FDA-Public Use
  Company Number: A0750810A

PATIENT
  Age: 50 Year
  Sex: Male

DRUGS (17)
  1. ADVAIR DISKUS 100/50 [Suspect]
     Indication: CHRONIC OBSTRUCTIVE PULMONARY DISEASE
     Route: 055
     Dates: start: 20060901
  2. ABILIFY [Concomitant]
  3. ISOSORBIDE [Concomitant]
  4. AMLODIPINE [Concomitant]
  5. CARDURA [Concomitant]
  6. ENALAPRIL MALEATE [Concomitant]
  7. CITALOPRAM HYDROBROMIDE [Concomitant]
  8. FELDENE [Concomitant]
  9. NITROGLYCERIN [Concomitant]
  10. TOPROL-XL [Concomitant]
  11. GLUCOPHAGE [Concomitant]
  12. PLAVIX [Concomitant]
  13. PULMICORT-100 [Concomitant]
  14. CRESTOR [Concomitant]
  15. SINGULAIR [Concomitant]
  16. ASPIRIN [Concomitant]
  17. XOPENEX [Concomitant]

REACTIONS (1)
  - DEATH [None]
